FAERS Safety Report 6690846-1 (Version None)
Quarter: 2010Q2

REPORT INFORMATION
  Report Type: 
  Country: None (occurrence: None)
  Receive Date: 20100421
  Receipt Date: 20100416
  Transmission Date: 20101027
  Serious: Yes (Death)
  Sender: FDA-Public Use
  Company Number: US-GILEAD-2010-0028572

PATIENT
  Sex: Female
  Weight: 52.21 kg

DRUGS (12)
  1. LETAIRIS [Suspect]
     Indication: PULMONARY ARTERIAL HYPERTENSION
     Route: 048
     Dates: start: 20090312
  2. REQUIP [Concomitant]
  3. LASIX [Concomitant]
  4. TOPROL-XL [Concomitant]
  5. LANOXIN [Concomitant]
  6. LIPITOR [Concomitant]
  7. PACERONE [Concomitant]
  8. DUONEB [Concomitant]
  9. ZOLOFT [Concomitant]
  10. PRILOSEC [Concomitant]
  11. CELEBREX [Concomitant]
  12. KLOR-CON [Concomitant]

REACTIONS (1)
  - DEATH [None]
